FAERS Safety Report 13629787 (Version 1)
Quarter: 2017Q2

REPORT INFORMATION
  Report Type: Spontaneous
  Country: US (occurrence: US)
  Receive Date: 20170531
  Receipt Date: 20170531
  Transmission Date: 20170830
  Serious: No
  Sender: FDA-Public Use
  Company Number: US-ASTELLAS-1246322

PATIENT
  Sex: Male

DRUGS (8)
  1. SENNA LAXATIVE [Concomitant]
     Active Substance: SENNOSIDES
  2. MARINOL [Concomitant]
     Active Substance: DRONABINOL
  3. TARCEVA [Suspect]
     Active Substance: ERLOTINIB HYDROCHLORIDE
     Indication: LUNG NEOPLASM MALIGNANT
     Dosage: QD
     Route: 065
     Dates: start: 20130627
  4. FOLIC ACID. [Concomitant]
     Active Substance: FOLIC ACID
  5. MELATONIN [Concomitant]
     Active Substance: MELATONIN
  6. DILAUDID [Concomitant]
     Active Substance: HYDROMORPHONE HYDROCHLORIDE
  7. ZOFRAN [Concomitant]
     Active Substance: ONDANSETRON HYDROCHLORIDE
  8. LUPRON DEPOT [Concomitant]
     Active Substance: LEUPROLIDE ACETATE

REACTIONS (3)
  - Pain [Not Recovered/Not Resolved]
  - Dizziness [Not Recovered/Not Resolved]
  - Fatigue [Not Recovered/Not Resolved]
